FAERS Safety Report 9460864 (Version 1)
Quarter: 2013Q3

REPORT INFORMATION
  Report Type: Spontaneous
  Country: US (occurrence: US)
  Receive Date: 20130816
  Receipt Date: 20130816
  Transmission Date: 20140515
  Serious: Yes (Other)
  Sender: FDA-Public Use
  Company Number: US-AMGEN-USASP2013056310

PATIENT
  Age: 41 Year
  Sex: Female

DRUGS (3)
  1. ENBREL [Suspect]
     Indication: RHEUMATOID ARTHRITIS
     Dosage: 50 MG, QWK
     Route: 065
     Dates: start: 201307, end: 201307
  2. ANTIBIOTICS [Suspect]
     Indication: HYPERSENSITIVITY
     Dosage: UNK
     Route: 065
  3. ANTIBIOTICS [Suspect]
     Indication: INJECTION SITE RASH

REACTIONS (4)
  - Drug hypersensitivity [Unknown]
  - Urinary tract infection [Unknown]
  - Rash [Unknown]
  - Injection site rash [Unknown]
